FAERS Safety Report 18670909 (Version 2)
Quarter: 2021Q1

REPORT INFORMATION
  Report Type: Spontaneous
  Country: DE (occurrence: DE)
  Receive Date: 20201228
  Receipt Date: 20210102
  Transmission Date: 20210419
  Serious: Yes (Other)
  Sender: FDA-Public Use
  Company Number: NVSC2020DE343508

PATIENT
  Age: 85 Year
  Sex: Male

DRUGS (1)
  1. OLMESARTAN MEDOXOMIL. [Suspect]
     Active Substance: OLMESARTAN MEDOXOMIL
     Indication: PRODUCT USED FOR UNKNOWN INDICATION
     Dosage: 40 MG, QD (FOR MORE THAN 3 YEARS)
     Route: 065

REACTIONS (2)
  - Sprue-like enteropathy [Recovered/Resolved]
  - Gastrointestinal disorder [Recovered/Resolved]
